FAERS Safety Report 5574381-X (Version None)
Quarter: 2007Q4

REPORT INFORMATION
  Report Type: 
  Country: None (occurrence: None)
  Receive Date: 20071227
  Receipt Date: 20071218
  Transmission Date: 20080405
  Serious: Yes (Hospitalization)
  Sender: FDA-Public Use
  Company Number: US-BAYER-200713797BCC

PATIENT
  Age: 69 Year
  Sex: Female
  Weight: 64 kg

DRUGS (6)
  1. BAYER ASPIRIN LOW DOSE TABLET [Suspect]
     Indication: CARDIAC DISORDER
     Dosage: TOTAL DAILY DOSE: 81 MG  UNIT DOSE: 81 MG
     Route: 048
     Dates: start: 20071001
  2. ZOCOR [Concomitant]
  3. EVISTA [Concomitant]
  4. ATENOLOL [Concomitant]
  5. HCZT [Concomitant]
  6. NEXIUM [Concomitant]

REACTIONS (1)
  - PALPITATIONS [None]
